FAERS Safety Report 14768250 (Version 2)
Quarter: 2018Q2

REPORT INFORMATION
  Report Type: Report from Study
  Country: CH (occurrence: CH)
  Receive Date: 20180417
  Receipt Date: 20180618
  Transmission Date: 20180711
  Serious: Yes (Other)
  Sender: FDA-Public Use
  Company Number: CH-ROCHE-1439175

PATIENT

DRUGS (2)
  1. VINFLUNINE [Suspect]
     Active Substance: VINFLUNINE
     Indication: BREAST CANCER
     Dosage: ON DAY 1
     Route: 042
  2. CAPECITABINE. [Suspect]
     Active Substance: CAPECITABINE
     Indication: BREAST CANCER
     Dosage: CAPE IF GIVEN WITH VINFLUNINE, DOSE WAS 1650 MG/M2 ON DAYS 1 TO 14 OF 3 WEEK CYCLE ; WHILE WHEN GIVE
     Route: 048

REACTIONS (26)
  - Palmar-plantar erythrodysaesthesia syndrome [Unknown]
  - Abdominal pain [Unknown]
  - Dyspnoea [Unknown]
  - Weight decreased [Unknown]
  - Diarrhoea [Unknown]
  - Headache [Unknown]
  - Neuropathy peripheral [Unknown]
  - Fatigue [Unknown]
  - Injection site reaction [Unknown]
  - Stomatitis [Unknown]
  - Decreased appetite [Unknown]
  - Haemoglobin abnormal [Unknown]
  - Neutrophil count abnormal [Unknown]
  - Asthenia [Unknown]
  - Febrile neutropenia [Unknown]
  - Nausea [Unknown]
  - Platelet count abnormal [Unknown]
  - Constipation [Unknown]
  - Vomiting [Unknown]
  - Peripheral sensory neuropathy [Unknown]
  - Alopecia [Unknown]
  - Cough [Unknown]
  - Neutropenia [Unknown]
  - Anaemia [Unknown]
  - Weight increased [Unknown]
  - White blood cell count abnormal [Unknown]
